FAERS Safety Report 8115111-7 (Version None)
Quarter: 2012Q1

REPORT INFORMATION
  Report Type: 
  Country: None (occurrence: None)
  Receive Date: 20120201
  Receipt Date: 20120120
  Transmission Date: 20120608
  Serious: Yes (Hospitalization, Other)
  Sender: FDA-Public Use
  Company Number: WAES 1201USA02748

PATIENT
  Age: 70 Year
  Sex: Male
  Weight: 80.7403 kg

DRUGS (4)
  1. LIPITOR [Suspect]
     Indication: BLOOD CHOLESTEROL INCREASED
     Dosage: 80 MG/DAILY/PO
     Route: 048
     Dates: start: 20110805
  2. OXYBUTYNIN [Concomitant]
  3. HYTRIN [Concomitant]
  4. ZOCOR [Suspect]
     Indication: BLOOD CHOLESTEROL INCREASED
     Dosage: 4 MG/DAILY/PO
     Route: 048
     Dates: start: 19920101, end: 20110804

REACTIONS (3)
  - POLLAKIURIA [None]
  - UPPER RESPIRATORY TRACT INFECTION [None]
  - HYPERTENSION [None]
